FAERS Safety Report 12647035 (Version 1)
Quarter: 2016Q3

REPORT INFORMATION
  Report Type: Spontaneous
  Country: US (occurrence: None)
  Receive Date: 20160811
  Receipt Date: 20160811
  Transmission Date: 20161109
  Serious: Yes (Other)
  Sender: FDA-Public Use
  Company Number: None

PATIENT
  Age: 51 Year
  Sex: Female
  Weight: 48.99 kg

DRUGS (5)
  1. GREENS POWDER [Concomitant]
  2. CHLORHEXIDINE GLUCONATE 0.12% [Suspect]
     Active Substance: CHLORHEXIDINE GLUCONATE
     Indication: DENTAL OPERATION
     Dosage: 473 ML TWICE A DAY ORAL RINSE
     Dates: start: 20160804, end: 20160806
  3. VITAMIN B [Concomitant]
     Active Substance: VITAMIN B
  4. VITAMIN D3 [Concomitant]
     Active Substance: CHOLECALCIFEROL
  5. COLLAGEN [Concomitant]
     Active Substance: COLLAGEN

REACTIONS (4)
  - Application site paraesthesia [None]
  - Application site discomfort [None]
  - Impaired healing [None]
  - Application site pruritus [None]

NARRATIVE: CASE EVENT DATE: 20160806
